FAERS Safety Report 13033806 (Version 1)
Quarter: 2016Q4

REPORT INFORMATION
  Report Type: Spontaneous
  Country: JP (occurrence: JP)
  Receive Date: 20161216
  Receipt Date: 20161216
  Transmission Date: 20170207
  Serious: Yes (Other)
  Sender: FDA-Public Use
  Company Number: JP-BRISTOL-MYERS SQUIBB COMPANY-BMS-2016-107401

PATIENT
  Age: 68 Year
  Sex: Male

DRUGS (5)
  1. METGLUCO [Suspect]
     Active Substance: METFORMIN HYDROCHLORIDE
     Indication: TYPE 2 DIABETES MELLITUS
     Route: 065
  2. INSULIN GLARGINE [Concomitant]
     Active Substance: INSULIN GLARGINE
     Indication: TYPE 2 DIABETES MELLITUS
     Route: 065
  3. DECADRON [Concomitant]
     Active Substance: DEXAMETHASONE
     Indication: PROSTATE CANCER
     Dosage: 1 MG, UNK
     Route: 065
  4. INSULIN LISPRO [Concomitant]
     Active Substance: INSULIN LISPRO
     Indication: TYPE 2 DIABETES MELLITUS
     Route: 065
  5. CYCLOPHOSPHAMIDE. [Concomitant]
     Active Substance: CYCLOPHOSPHAMIDE
     Indication: PROSTATE CANCER
     Route: 065

REACTIONS (7)
  - Decreased appetite [Recovering/Resolving]
  - Swelling [Recovering/Resolving]
  - Inflammation [Recovering/Resolving]
  - Feeling hot [Recovering/Resolving]
  - Panniculitis [Recovering/Resolving]
  - Erythema [Recovering/Resolving]
  - Pyrexia [Recovering/Resolving]
